FAERS Safety Report 8314655-2 (Version None)
Quarter: 2012Q2

REPORT INFORMATION
  Report Type: 
  Country: None (occurrence: None)
  Receive Date: 20120426
  Receipt Date: 20080818
  Transmission Date: 20120825
  Serious: Yes (Other)
  Sender: FDA-Public Use
  Company Number: US-TEVA-US024399

PATIENT
  Sex: Male
  Weight: 60 kg

DRUGS (7)
  1. SILDENAFIL CITRATE [Concomitant]
     Indication: DISTURBANCE IN SEXUAL AROUSAL
     Route: 065
  2. PROVIGIL [Suspect]
     Indication: NARCOLEPSY
     Route: 048
     Dates: start: 20080501
  3. XYREM [Suspect]
     Indication: NARCOLEPSY
     Dosage: 7.5 GRAM;
     Route: 048
     Dates: start: 20080601
  4. NIACIN [Concomitant]
     Indication: HIGH DENSITY LIPOPROTEIN DECREASED
     Route: 065
  5. MULTI-VITAMIN [Concomitant]
     Indication: VITAMIN SUPPLEMENTATION
     Route: 065
  6. XYREM [Suspect]
     Indication: SLEEP APNOEA SYNDROME
  7. PROVIGIL [Suspect]
     Indication: SLEEP APNOEA SYNDROME

REACTIONS (3)
  - WEIGHT DECREASED [None]
  - DECREASED APPETITE [None]
  - NAUSEA [None]
